FAERS Safety Report 7073716-9 (Version None)
Quarter: 2010Q4

REPORT INFORMATION
  Report Type: 
  Country: None (occurrence: None)
  Receive Date: 20101029
  Receipt Date: 20100804
  Transmission Date: 20110411
  Serious: No
  Sender: FDA-Public Use
  Company Number: A0874010A

PATIENT
  Age: 74 Year
  Sex: Male

DRUGS (11)
  1. ADVAIR DISKUS 100/50 [Suspect]
     Indication: CHRONIC OBSTRUCTIVE PULMONARY DISEASE
     Dosage: 1PUFF TWICE PER DAY
     Route: 055
     Dates: start: 20060101
  2. SIMVASTATIN [Concomitant]
  3. SPIRIVA [Concomitant]
  4. TRICOR [Concomitant]
  5. OMEPRAZOLE [Concomitant]
  6. ALPRAZOLAM [Concomitant]
  7. ATENOLOL [Concomitant]
  8. AMLODIPINE [Concomitant]
  9. ASPIRIN [Concomitant]
  10. FISH OIL [Concomitant]
  11. MULTI-VITAMIN [Concomitant]

REACTIONS (4)
  - ARTHROPATHY [None]
  - JOINT EFFUSION [None]
  - SWELLING [None]
  - SYNOVIAL DISORDER [None]
